FAERS Safety Report 23258001 (Version 1)
Quarter: 2023Q4

REPORT INFORMATION
  Report Type: Spontaneous
  Country: US (occurrence: US)
  Receive Date: 20231204
  Receipt Date: 20231204
  Transmission Date: 20240110
  Serious: Yes (Other)
  Sender: FDA-Public Use
  Company Number: US-ENDO-CASE-0048289

PATIENT

DRUGS (10)
  1. ACETAMINOPHEN\OXYCODONE HYDROCHLORIDE [Suspect]
     Active Substance: ACETAMINOPHEN\OXYCODONE HYDROCHLORIDE
  2. ACETAMINOPHEN\HYDROCODONE BITARTRATE [Suspect]
     Active Substance: ACETAMINOPHEN\HYDROCODONE BITARTRATE
  3. TRAMADOL HYDROCHLORIDE [Suspect]
     Active Substance: TRAMADOL HYDROCHLORIDE
  4. ENDOCET [Suspect]
     Active Substance: ACETAMINOPHEN\OXYCODONE HYDROCHLORIDE
  5. PERCOCET [Suspect]
     Active Substance: ACETAMINOPHEN\OXYCODONE HYDROCHLORIDE
  6. MORPHINE SULFATE [Suspect]
     Active Substance: MORPHINE SULFATE
  7. DEPODUR [Suspect]
     Active Substance: MORPHINE SULFATE
  8. ACETAMINOPHEN\HYDROCODONE BITARTRATE [Suspect]
     Active Substance: ACETAMINOPHEN\HYDROCODONE BITARTRATE
  9. NAPROXEN [Suspect]
     Active Substance: NAPROXEN
  10. HYDROCODONE BITARTRATE\IBUPROFEN [Suspect]
     Active Substance: HYDROCODONE BITARTRATE\IBUPROFEN

REACTIONS (9)
  - Eating disorder [Unknown]
  - Dependence [Unknown]
  - Spinal fracture [Unknown]
  - Anxiety [Unknown]
  - Paranoia [Unknown]
  - Arrhythmia [Unknown]
  - Sleep disorder [Unknown]
  - Cerebral disorder [Unknown]
  - Atrial fibrillation [Unknown]
